FAERS Safety Report 7833877-8 (Version None)
Quarter: 2011Q4

REPORT INFORMATION
  Report Type: 
  Country: None (occurrence: None)
  Receive Date: 20111024
  Receipt Date: 20110920
  Transmission Date: 20120403
  Serious: Yes (Hospitalization)
  Sender: FDA-Public Use
  Company Number: DE-ROCHE-GNE324270

PATIENT
  Sex: Male

DRUGS (7)
  1. ALLOPURINOL [Concomitant]
  2. FURANTHRIL [Concomitant]
  3. LUCENTIS [Suspect]
     Indication: DIABETIC RETINAL OEDEMA
     Route: 050
     Dates: start: 20110707, end: 20110801
  4. ACE INHIBITOR (RO 31-2201) [Concomitant]
  5. DELIX PLUS [Concomitant]
     Dosage: 5/25 MG
  6. CLOPIDOGREL [Concomitant]
  7. ESCOR [Concomitant]

REACTIONS (3)
  - CARDIAC DISORDER [None]
  - HEPATIC VEIN DILATATION [None]
  - RENAL FAILURE ACUTE [None]
